FAERS Safety Report 11782720 (Version 2)
Quarter: 2019Q3

REPORT INFORMATION
  Report Type: Spontaneous
  Country: DE (occurrence: DE)
  Receive Date: 20151127
  Receipt Date: 20190701
  Transmission Date: 20191004
  Serious: Yes (Congenital Anomaly, Other)
  Sender: FDA-Public Use
  Company Number: GXKR2015DE005173

PATIENT
  Sex: Male
  Weight: 4.29 kg

DRUGS (8)
  1. FOLSAEURE [Concomitant]
     Active Substance: FOLIC ACID
     Indication: PROPHYLAXIS OF NEURAL TUBE DEFECT
     Dosage: 0.8 MG, QD
     Route: 064
     Dates: start: 20140612, end: 20150220
  2. FOLIC ACID. [Concomitant]
     Active Substance: FOLIC ACID
     Indication: PROPHYLAXIS OF NEURAL TUBE DEFECT
     Dosage: 0.8 MG, QD
     Route: 064
     Dates: start: 20140612, end: 20150220
  3. CETIRIZINE [Suspect]
     Active Substance: CETIRIZINE HYDROCHLORIDE
     Indication: HYPERSENSITIVITY
     Dosage: 10 [MG/D ] (GW0-20)
     Route: 064
  4. ZYRTEC [Suspect]
     Active Substance: CETIRIZINE HYDROCHLORIDE
     Indication: HYPERSENSITIVITY
     Dosage: 10 MG, QD
     Route: 064
     Dates: start: 20140525, end: 20140928
  5. TRAUMEEL [Concomitant]
     Indication: PAIN
     Route: 064
  6. NOVAMINSULFON [Concomitant]
     Active Substance: METAMIZOLE
     Indication: FIBROMYALGIA
     Dosage: UNK
     Route: 064
     Dates: start: 20140525, end: 20140617
  7. BISOPROLOL [Suspect]
     Active Substance: BISOPROLOL
     Indication: HYPERTENSION
     Dosage: 5 MG, BID (GW0-40.5)
     Route: 064
     Dates: start: 20140524, end: 20150220
  8. VALDOXAN [Concomitant]
     Active Substance: AGOMELATINE
     Indication: DEPRESSION
     Dosage: 50 MG, QD
     Route: 064
     Dates: start: 20140525, end: 20140612

REACTIONS (6)
  - Large for dates baby [Unknown]
  - Foetal heart rate deceleration abnormality [Unknown]
  - Congenital hydronephrosis [Not Recovered/Not Resolved]
  - Hydroureter [Not Recovered/Not Resolved]
  - Maternal exposure during pregnancy [Unknown]
  - Reflux nephropathy [Not Recovered/Not Resolved]

NARRATIVE: CASE EVENT DATE: 20140525
